FAERS Safety Report 23216905 (Version 1)
Quarter: 2023Q4

REPORT INFORMATION
  Report Type: Spontaneous
  Country: IN (occurrence: IN)
  Receive Date: 20231122
  Receipt Date: 20231122
  Transmission Date: 20240110
  Serious: Yes (Hospitalization)
  Sender: FDA-Public Use
  Company Number: IN-STRIDES ARCOLAB LIMITED-2023SP017480

PATIENT
  Age: 41 Year
  Sex: Female

DRUGS (1)
  1. PHENOBARBITAL [Suspect]
     Active Substance: PHENOBARBITAL
     Indication: Epilepsy
     Dosage: UNK
     Route: 065

REACTIONS (5)
  - Deep vein thrombosis [Recovered/Resolved]
  - Pleural effusion [Recovered/Resolved]
  - Hypoproteinaemia [Recovered/Resolved]
  - Toxic epidermal necrolysis [Recovered/Resolved]
  - Electrolyte imbalance [Recovered/Resolved]
